FAERS Safety Report 9496795 (Version 1)
Quarter: 2013Q3

REPORT INFORMATION
  Report Type: Spontaneous
  Country: US (occurrence: None)
  Receive Date: 20130903
  Receipt Date: 20130903
  Transmission Date: 20140515
  Serious: Yes (Disabling, Other)
  Sender: FDA-Public Use
  Company Number: None

PATIENT
  Age: 46 Year
  Sex: Female
  Weight: 77.11 kg

DRUGS (4)
  1. BUPRENORPHINE HYDROCHLORIDE\NALOXONE HYDROCHLORIDE [Suspect]
     Dosage: TWICE DAILY TAKEN UNDER THE TONGUE
     Dates: start: 20130828, end: 20130829
  2. NAPROXEN [Concomitant]
  3. ADDERALL [Concomitant]
  4. SLEEPYTIME HERBAL TEA (CHAMOMILE AND PEPPERMINT) [Concomitant]

REACTIONS (6)
  - Insomnia [None]
  - Grunting [None]
  - Tic [None]
  - Muscle spasms [None]
  - Neck pain [None]
  - Respiratory disorder [None]
